FAERS Safety Report 4429521-2 (Version None)
Quarter: 2004Q3

REPORT INFORMATION
  Report Type: 
  Country: None (occurrence: None)
  Receive Date: 20040813
  Receipt Date: 20040729
  Transmission Date: 20050211
  Serious: Yes (Other)
  Sender: FDA-Public Use
  Company Number: 2004-DE-04175GD

PATIENT

DRUGS (2)
  1. NEVIRAPINE (NEVIRAPINE) (NEVIRAPINE) [Suspect]
     Indication: HIV INFECTION
  2. D4T (STAVUDINE) [Suspect]
     Indication: HIV INFECTION

REACTIONS (1)
  - HYPERLACTACIDAEMIA [None]
